FAERS Safety Report 25261546 (Version 3)
Quarter: 2025Q3

REPORT INFORMATION
  Report Type: Spontaneous
  Country: JP (occurrence: JP)
  Receive Date: 20250501
  Receipt Date: 20250810
  Transmission Date: 20251020
  Serious: Yes (Hospitalization, Other)
  Sender: ALEXION PHARMACEUTICALS
  Company Number: JP-ASTRAZENECA-250041622_012620_P_1

PATIENT
  Sex: Female

DRUGS (4)
  1. TRUQAP [Suspect]
     Active Substance: CAPIVASERTIB
     Indication: Breast cancer
     Dosage: 4 CONSECUTIVE DAYS ADMINISTRATION, FOLLOWED BY 3 DAYS OFF
     Dates: start: 202502, end: 202503
  2. TRUQAP [Suspect]
     Active Substance: CAPIVASERTIB
     Dosage: 4 CONSECUTIVE DAYS ADMINISTRATION, FOLLOWED BY 3 DAYS OFF
     Dates: start: 202503, end: 202503
  3. FULVESTRANT [Suspect]
     Active Substance: FULVESTRANT
     Indication: Breast cancer
  4. FULVESTRANT [Suspect]
     Active Substance: FULVESTRANT

REACTIONS (3)
  - Interstitial lung disease [Recovered/Resolved]
  - Renal impairment [Recovered/Resolved]
  - Dehydration [Recovered/Resolved]

NARRATIVE: CASE EVENT DATE: 20250301
